FAERS Safety Report 11103061 (Version 2)
Quarter: 2015Q2

REPORT INFORMATION
  Report Type: Spontaneous
  Country: AT (occurrence: AT)
  Receive Date: 20150511
  Receipt Date: 20150527
  Transmission Date: 20150821
  Serious: Yes (Hospitalization)
  Sender: FDA-Public Use
  Company Number: AT-ABBVIE-15P-009-1388516-00

PATIENT
  Sex: Female

DRUGS (1)
  1. DUODOPA [Suspect]
     Active Substance: CARBIDOPA\LEVODOPA
     Indication: PARKINSON^S DISEASE
     Dosage: MD. 8 ML,ED. 1.5 ML,CR: 3.4 ML/H
     Route: 050
     Dates: start: 201502

REACTIONS (6)
  - Vomiting [Unknown]
  - General physical health deterioration [Unknown]
  - Weight decreased [Not Recovered/Not Resolved]
  - Epilepsy [Not Recovered/Not Resolved]
  - Gastrointestinal tube insertion [Unknown]
  - Device connection issue [Unknown]
